FAERS Safety Report 6823431-9 (Version None)
Quarter: 2010Q3

REPORT INFORMATION
  Report Type: 
  Country: None (occurrence: None)
  Receive Date: 20100708
  Receipt Date: 20100628
  Transmission Date: 20110219
  Serious: Yes (Hospitalization)
  Sender: FDA-Public Use
  Company Number: JP-AMGEN-QUU416931

PATIENT
  Age: 69 Year
  Sex: Male
  Weight: 66 kg

DRUGS (7)
  1. ENBREL [Suspect]
     Indication: RHEUMATOID ARTHRITIS
     Route: 058
     Dates: start: 20080808, end: 20100413
  2. ENBREL [Suspect]
     Route: 058
     Dates: start: 20100420
  3. ZANTAC [Concomitant]
     Indication: GASTRITIS PROPHYLAXIS
     Route: 048
     Dates: start: 20080908
  4. BENET [Concomitant]
     Indication: OSTEOPOROSIS
     Route: 048
     Dates: start: 20080908
  5. HYPEN [Concomitant]
     Indication: RHEUMATOID ARTHRITIS
     Route: 048
     Dates: start: 20080908
  6. METOLATE [Concomitant]
     Indication: RHEUMATOID ARTHRITIS
     Route: 048
     Dates: start: 20080908
  7. FOLIAMIN [Concomitant]
     Route: 048
     Dates: start: 20080908

REACTIONS (1)
  - COLITIS ULCERATIVE [None]
